FAERS Safety Report 6291397-9 (Version None)
Quarter: 2009Q3

REPORT INFORMATION
  Report Type: 
  Country: None (occurrence: None)
  Receive Date: 20090729
  Receipt Date: 20090729
  Transmission Date: 20100115
  Serious: Yes (Hospitalization)
  Sender: FDA-Public Use
  Company Number: None

PATIENT
  Age: 63 Year
  Sex: Male
  Weight: 93.4 kg

DRUGS (2)
  1. LISINOPRIL AND HYDROCHLOROTHIAZIDE [Suspect]
     Indication: HYPERTENSION
     Dosage: 12,5/10 MG, EVERY DAY, PO
     Route: 048
     Dates: start: 20090113, end: 20090617
  2. IBUPROFEN [Suspect]
     Indication: PAIN
     Dosage: MG, PO
     Route: 048
     Dates: end: 20090617

REACTIONS (1)
  - RENAL FAILURE ACUTE [None]
